FAERS Safety Report 15842556 (Version 1)
Quarter: 2019Q1

REPORT INFORMATION
  Report Type: Spontaneous
  Country: US (occurrence: US)
  Receive Date: 20190118
  Receipt Date: 20190118
  Transmission Date: 20190417
  Serious: Yes (Other)
  Sender: FDA-Public Use
  Company Number: None

PATIENT
  Age: 44 Year
  Sex: Female
  Weight: 48.9 kg

DRUGS (1)
  1. INJECTAFER [Suspect]
     Active Substance: FERRIC CARBOXYMALTOSE
     Indication: IRON DEFICIENCY ANAEMIA
     Dosage: ?          OTHER FREQUENCY:WEEKLY;?
     Route: 041
     Dates: start: 20181227, end: 20181227

REACTIONS (2)
  - Throat irritation [None]
  - Infusion related reaction [None]

NARRATIVE: CASE EVENT DATE: 20181227
